FAERS Safety Report 6417615-1 (Version None)
Quarter: 2009Q4

REPORT INFORMATION
  Report Type: 
  Country: None (occurrence: None)
  Receive Date: 20091028
  Receipt Date: 20091020
  Transmission Date: 20100525
  Serious: Yes (Other)
  Sender: FDA-Public Use
  Company Number: DE-ROCHE-664576

PATIENT
  Age: 65 Year
  Sex: Male

DRUGS (1)
  1. CAPECITABINE [Suspect]
     Indication: DRUG USE FOR UNKNOWN INDICATION
     Dosage: CYCLE 1
     Route: 065
     Dates: start: 20081104

REACTIONS (1)
  - ARTERIOSPASM CORONARY [None]
